FAERS Safety Report 7053865-1 (Version None)
Quarter: 2010Q4

REPORT INFORMATION
  Report Type: 
  Country: None (occurrence: None)
  Receive Date: 20101020
  Receipt Date: 20101012
  Transmission Date: 20110411
  Serious: Yes (Hospitalization)
  Sender: FDA-Public Use
  Company Number: US-WATSON-2008-04236

PATIENT
  Sex: Male
  Weight: 68.481 kg

DRUGS (10)
  1. NORCO [Suspect]
     Indication: ABDOMINAL PAIN
     Dosage: 1 TABLET Q 6 HOURS PRN
     Route: 048
     Dates: start: 20080505
  2. AG-013, 736 (AG013, 736) AXITINIB [Suspect]
     Indication: COLORECTAL CANCER
     Dosage: 5 MG, BID
     Route: 048
     Dates: start: 20080515
  3. AVASTIN [Suspect]
     Indication: COLORECTAL CANCER
     Dosage: 2 MG/KG, 1 IN 2 WK
     Route: 042
     Dates: start: 20080515
  4. OXALIPLATIN [Suspect]
     Indication: COLORECTAL CANCER
     Dosage: 150 MG, UNKNOWN
     Route: 042
     Dates: start: 20080515, end: 20080515
  5. CALCIUM FOLINATE [Suspect]
     Indication: COLORECTAL CANCER
     Dosage: 720 MG, UNKNOWN
     Route: 042
     Dates: start: 20080515, end: 20080515
  6. 5-FU                               /00098801/ [Suspect]
     Indication: COLORECTAL CANCER
     Dosage: 720 MG, UNKNOWN
     Route: 042
     Dates: start: 20080515, end: 20080515
  7. 5-FU                               /00098801/ [Suspect]
     Dosage: 4300 MG, CONTINUOUS
     Route: 042
     Dates: start: 20080515, end: 20080515
  8. ALOXI [Suspect]
     Indication: PRODUCT USED FOR UNKNOWN INDICATION
     Dosage: 25 MCG, UNKNOWN
     Route: 042
     Dates: start: 20080515, end: 20080515
  9. LASIX [Suspect]
     Indication: PRODUCT USED FOR UNKNOWN INDICATION
     Dosage: UNK
     Route: 048
     Dates: start: 20080501, end: 20080614
  10. DEXAMETHASONE [Concomitant]
     Indication: PRODUCT USED FOR UNKNOWN INDICATION
     Dosage: 5 MG, UNKNOWN
     Route: 042
     Dates: start: 20080515, end: 20080515

REACTIONS (6)
  - BLOOD UREA INCREASED [None]
  - CONSTIPATION [None]
  - DEHYDRATION [None]
  - MALNUTRITION [None]
  - OEDEMA PERIPHERAL [None]
  - SCROTAL OEDEMA [None]
